FAERS Safety Report 17259082 (Version 15)
Quarter: 2021Q2

REPORT INFORMATION
  Report Type: Report from Study
  Country: DE (occurrence: DE)
  Receive Date: 20200110
  Receipt Date: 20210421
  Transmission Date: 20210716
  Serious: Yes (Life-Threatening, Hospitalization, Other)
  Sender: FDA-Public Use
  Company Number: DE-ANIPHARMA-2019-DE-000183

PATIENT
  Age: 63 Year
  Sex: Female
  Weight: 73 kg

DRUGS (1)
  1. ANASTROZOLE. [Suspect]
     Active Substance: ANASTROZOLE
     Indication: HER2 POSITIVE BREAST CANCER
     Dosage: 1 MG DAILY
     Route: 048
     Dates: start: 20191106, end: 20191123

REACTIONS (23)
  - Abdominal wall cyst [Unknown]
  - Vomiting [Recovered/Resolved]
  - Fatigue [Unknown]
  - Pancytopenia [Unknown]
  - Thrombosis [Unknown]
  - Thrombocytopenia [Recovered/Resolved]
  - Acute hepatic failure [Unknown]
  - Diarrhoea [Recovered/Resolved]
  - Second primary malignancy [Unknown]
  - General physical health deterioration [Recovered/Resolved]
  - Hypersensitivity [Recovered/Resolved]
  - Haemoglobin decreased [Unknown]
  - Peritoneal neoplasm [Unknown]
  - Pruritus [Recovered/Resolved]
  - Nausea [Recovered/Resolved]
  - Ovarian cancer [Unknown]
  - Pyrexia [Recovered/Resolved]
  - Dysphagia [Recovered/Resolved]
  - Pleural effusion [Unknown]
  - Retroperitoneal cancer [Unknown]
  - White blood cell disorder [Recovered/Resolved]
  - Rash [Recovered/Resolved]
  - Ascites [Unknown]

NARRATIVE: CASE EVENT DATE: 20191112
